FAERS Safety Report 18777822 (Version 3)
Quarter: 2021Q3

REPORT INFORMATION
  Report Type: Spontaneous
  Country: US (occurrence: US)
  Receive Date: 20210122
  Receipt Date: 20210722
  Transmission Date: 20211014
  Serious: No
  Sender: FDA-Public Use
  Company Number: 2020SGN02052

PATIENT
  Age: 73 Year
  Sex: Female

DRUGS (8)
  1. HERCEPTIN [Concomitant]
     Active Substance: TRASTUZUMAB
     Indication: BREAST CANCER
  2. TUKYSA [Suspect]
     Active Substance: TUCATINIB
     Dosage: UNK
  3. DOXYCYCLINE. [Suspect]
     Active Substance: DOXYCYCLINE
     Indication: ARTHROPOD BITE
  4. TUKYSA [Suspect]
     Active Substance: TUCATINIB
     Dosage: UNK
  5. TUKYSA [Suspect]
     Active Substance: TUCATINIB
     Dosage: UNK
  6. TUKYSA [Suspect]
     Active Substance: TUCATINIB
     Dosage: UNK
  7. TUKYSA [Suspect]
     Active Substance: TUCATINIB
     Indication: BREAST CANCER
     Dosage: UNK, BID
     Route: 048
     Dates: start: 202001
  8. ATARAX [Concomitant]
     Active Substance: HYDROXYZINE HYDROCHLORIDE
     Indication: PRURITUS

REACTIONS (21)
  - Feeling abnormal [Unknown]
  - Pain in extremity [Unknown]
  - Disturbance in attention [Unknown]
  - Abdominal pain upper [Unknown]
  - Nausea [Unknown]
  - Off label use [Unknown]
  - Arthropod bite [Unknown]
  - Epistaxis [Unknown]
  - Somnolence [Unknown]
  - Onychomadesis [Unknown]
  - Pruritus [Unknown]
  - Nail disorder [Unknown]
  - Alopecia [Unknown]
  - Headache [Unknown]
  - Neuropathy peripheral [Unknown]
  - Vision blurred [Unknown]
  - Fatigue [Unknown]
  - Balance disorder [Unknown]
  - Hot flush [Unknown]
  - Muscle spasms [Unknown]
  - Arthralgia [Unknown]

NARRATIVE: CASE EVENT DATE: 20200505
